FAERS Safety Report 4712191-3 (Version None)
Quarter: 2005Q3

REPORT INFORMATION
  Report Type: 
  Country: None (occurrence: None)
  Receive Date: 20050712
  Receipt Date: 20050630
  Transmission Date: 20060218
  Serious: Yes (Other)
  Sender: FDA-Public Use
  Company Number: US-BRISTOL-MYERS SQUIBB COMPANY-13023122

PATIENT
  Age: 50 Year
  Sex: Male

DRUGS (4)
  1. REYATAZ [Suspect]
     Indication: HIV INFECTION
     Route: 048
     Dates: start: 20050601, end: 20050101
  2. FUZEON [Suspect]
     Indication: HIV INFECTION
     Dates: start: 20050601
  3. RITONAVIR [Concomitant]
  4. VIREAD [Concomitant]

REACTIONS (1)
  - PANCREATITIS [None]
